FAERS Safety Report 19508692 (Version 2)
Quarter: 2021Q3

REPORT INFORMATION
  Report Type: Report from Study
  Country: None (occurrence: CA)
  Receive Date: 20210709
  Receipt Date: 20210730
  Transmission Date: 20211014
  Serious: Yes (Other)
  Sender: FDA-Public Use
  Company Number: CA-ABBVIE-21K-028-3983229-00

PATIENT
  Sex: Female

DRUGS (1)
  1. HUMIRA [Suspect]
     Active Substance: ADALIMUMAB
     Indication: UVEITIS
     Route: 058
     Dates: start: 20190806

REACTIONS (4)
  - Glaucoma [Unknown]
  - Inflammation [Not Recovered/Not Resolved]
  - Uveitis [Unknown]
  - Injection site pain [Not Recovered/Not Resolved]
